FAERS Safety Report 6981107-1 (Version None)
Quarter: 2010Q3

REPORT INFORMATION
  Report Type: 
  Country: None (occurrence: None)
  Receive Date: 20100914
  Receipt Date: 20100902
  Transmission Date: 20110219
  Serious: Yes (Other)
  Sender: FDA-Public Use
  Company Number: US-MERCK-1009USA00276

PATIENT
  Age: 72 Year
  Sex: Female
  Weight: 73 kg

DRUGS (5)
  1. ZETIA [Suspect]
     Route: 048
  2. LIPITOR [Suspect]
     Indication: MITRAL VALVE PROLAPSE
     Route: 065
     Dates: start: 20070501
  3. LIPITOR [Suspect]
     Indication: BLOOD CHOLESTEROL
     Route: 065
     Dates: start: 20070501
  4. TOPROL-XL [Concomitant]
     Indication: MITRAL VALVE PROLAPSE
     Route: 065
  5. FIORICET [Concomitant]
     Route: 065

REACTIONS (5)
  - GINGIVAL PAIN [None]
  - HEADACHE [None]
  - HYPERTONIC BLADDER [None]
  - MITRAL VALVE DISEASE [None]
  - TOOTHACHE [None]
